FAERS Safety Report 10040402 (Version 1)
Quarter: 2014Q1

REPORT INFORMATION
  Report Type: Spontaneous
  Country: US (occurrence: US)
  Receive Date: 20140327
  Receipt Date: 20140327
  Transmission Date: 20141002
  Serious: No
  Sender: FDA-Public Use
  Company Number: 2010BI004821

PATIENT
  Sex: Female

DRUGS (18)
  1. TYSABRI [Suspect]
     Indication: MULTIPLE SCLEROSIS
     Route: 042
     Dates: start: 20070918, end: 201309
  2. ADVAIR [Concomitant]
     Indication: PRODUCT USED FOR UNKNOWN INDICATION
     Route: 055
  3. FLONASE [Concomitant]
     Indication: PRODUCT USED FOR UNKNOWN INDICATION
  4. SINGULAIR [Concomitant]
     Indication: PRODUCT USED FOR UNKNOWN INDICATION
  5. VYVANSE [Concomitant]
     Indication: PRODUCT USED FOR UNKNOWN INDICATION
  6. PROVIGIL [Concomitant]
     Indication: PRODUCT USED FOR UNKNOWN INDICATION
  7. SYNTHROID [Concomitant]
     Indication: PRODUCT USED FOR UNKNOWN INDICATION
  8. CYCLOBENZAPRINE [Concomitant]
     Indication: PRODUCT USED FOR UNKNOWN INDICATION
  9. BACLOFEN [Concomitant]
     Indication: PRODUCT USED FOR UNKNOWN INDICATION
  10. WELLBUTRIN XL [Concomitant]
     Indication: PRODUCT USED FOR UNKNOWN INDICATION
  11. DIOVAN [Concomitant]
     Indication: PRODUCT USED FOR UNKNOWN INDICATION
  12. ARICEPT [Concomitant]
     Indication: PRODUCT USED FOR UNKNOWN INDICATION
  13. LEXAPRO [Concomitant]
     Indication: PRODUCT USED FOR UNKNOWN INDICATION
  14. PRAVACHOL [Concomitant]
     Indication: PRODUCT USED FOR UNKNOWN INDICATION
  15. LUNESTA [Concomitant]
     Indication: PRODUCT USED FOR UNKNOWN INDICATION
  16. ASA [Concomitant]
     Indication: PRODUCT USED FOR UNKNOWN INDICATION
  17. XANAX [Concomitant]
     Indication: PRODUCT USED FOR UNKNOWN INDICATION
  18. COLACE [Concomitant]
     Indication: PRODUCT USED FOR UNKNOWN INDICATION

REACTIONS (4)
  - Tremor [Unknown]
  - Hemiparesis [Unknown]
  - Familial tremor [Not Recovered/Not Resolved]
  - Essential tremor [Not Recovered/Not Resolved]
